FAERS Safety Report 26080721 (Version 1)
Quarter: 2025Q4

REPORT INFORMATION
  Report Type: Spontaneous
  Country: GB (occurrence: GB)
  Receive Date: 20251124
  Receipt Date: 20251124
  Transmission Date: 20260118
  Serious: Yes (Other)
  Sender: TEVA
  Company Number: None

PATIENT
  Age: 17 Year
  Sex: Female
  Weight: 54 kg

DRUGS (2)
  1. CETIRIZINE [Suspect]
     Active Substance: CETIRIZINE HYDROCHLORIDE
     Indication: Hypersensitivity
     Dosage: 10 MG
     Route: 065
     Dates: start: 2023, end: 20251111
  2. TOLTERODINE [Concomitant]
     Active Substance: TOLTERODINE
     Indication: Pollakiuria
     Dates: start: 20250801

REACTIONS (7)
  - Abnormal weight gain [Not Recovered/Not Resolved]
  - Increased appetite [Not Recovered/Not Resolved]
  - Medication error [Unknown]
  - Fatigue [Recovering/Resolving]
  - Urinary incontinence [Not Recovered/Not Resolved]
  - Muscle fatigue [Not Recovered/Not Resolved]
  - Pruritus [Not Recovered/Not Resolved]

NARRATIVE: CASE EVENT DATE: 20230601
